FAERS Safety Report 5515676-5 (Version None)
Quarter: 2007Q4

REPORT INFORMATION
  Report Type: 
  Country: None (occurrence: None)
  Receive Date: 20071113
  Receipt Date: 20070810
  Transmission Date: 20080405
  Serious: No
  Sender: FDA-Public Use
  Company Number: A0670225A

PATIENT
  Sex: Male

DRUGS (3)
  1. COREG [Suspect]
     Indication: DRUG USE FOR UNKNOWN INDICATION
     Dosage: 6.5MG TWICE PER DAY
     Route: 048
  2. AMBIEN [Concomitant]
     Route: 048
  3. CPAP [Concomitant]

REACTIONS (1)
  - INSOMNIA [None]
